FAERS Safety Report 7037755-6 (Version None)
Quarter: 2010Q4

REPORT INFORMATION
  Report Type: 
  Country: None (occurrence: None)
  Receive Date: 20101011
  Receipt Date: 20101004
  Transmission Date: 20110411
  Serious: Yes (Hospitalization)
  Sender: FDA-Public Use
  Company Number: CH-BAYER-201032497GPV

PATIENT
  Age: 16 Year
  Sex: Female
  Weight: 68 kg

DRUGS (1)
  1. YASMIN [Suspect]
     Indication: POLYCYSTIC OVARIES
     Dosage: UNSPECIFIED DAILY DOSE
     Route: 048
     Dates: start: 20100420, end: 20100626

REACTIONS (6)
  - FLANK PAIN [None]
  - HYPOKALAEMIA [None]
  - NEPHROPATHY [None]
  - PROTEINURIA [None]
  - RENAL IMPAIRMENT [None]
  - VOMITING [None]
